FAERS Safety Report 8032496-0 (Version None)
Quarter: 2011Q4

REPORT INFORMATION
  Report Type: 
  Country: None (occurrence: None)
  Receive Date: 20111223
  Receipt Date: 20111214
  Transmission Date: 20120403
  Serious: Yes (Other)
  Sender: FDA-Public Use
  Company Number: 2011MA017735

PATIENT
  Sex: Male
  Weight: 80.7403 kg

DRUGS (9)
  1. MULTI-VITAMINS [Concomitant]
  2. INDEXER [Concomitant]
  3. FLAGYL [Concomitant]
  4. DARVOCET [Concomitant]
  5. INDERAL [Concomitant]
  6. ASPIRIN [Concomitant]
  7. DIGOXIN [Suspect]
     Indication: PRODUCT USED FOR UNKNOWN INDICATION
     Dosage: 0.25 MG;QD;PO
     Route: 048
     Dates: start: 20050119, end: 20100216
  8. TRILIPIX [Concomitant]
  9. TORADOL [Concomitant]

REACTIONS (16)
  - PYREXIA [None]
  - TYPE 2 DIABETES MELLITUS [None]
  - ABDOMINAL PAIN LOWER [None]
  - PAIN [None]
  - DYSURIA [None]
  - ABDOMINAL PAIN [None]
  - WHEEZING [None]
  - CAROTID BRUIT [None]
  - HAEMATURIA [None]
  - DIVERTICULITIS [None]
  - PALPITATIONS [None]
  - CAROTID ARTERY STENOSIS [None]
  - URINARY TRACT INFECTION [None]
  - ATRIAL FIBRILLATION [None]
  - HAEMOGLOBIN DECREASED [None]
  - HEART RATE INCREASED [None]
